FAERS Safety Report 9593275 (Version 1)
Quarter: 2013Q4

REPORT INFORMATION
  Report Type: Spontaneous
  Country: AU (occurrence: AU)
  Receive Date: 20131004
  Receipt Date: 20131004
  Transmission Date: 20140711
  Serious: Yes (Life-Threatening)
  Sender: FDA-Public Use
  Company Number: AU-BAYER-2013-116429

PATIENT
  Age: 29 Year
  Sex: Female

DRUGS (1)
  1. YAZ [Suspect]
     Dosage: UNK
     Route: 048
     Dates: start: 201303

REACTIONS (5)
  - Pulmonary thrombosis [None]
  - Chest pain [None]
  - Thrombosis [None]
  - Embolism [None]
  - Gastric haemorrhage [None]
